FAERS Safety Report 8285180-2 (Version None)
Quarter: 2012Q2

REPORT INFORMATION
  Report Type: 
  Country: None (occurrence: None)
  Receive Date: 20120413
  Receipt Date: 20120229
  Transmission Date: 20120825
  Serious: No
  Sender: FDA-Public Use
  Company Number: US-ASTRAZENECA-2012SE12372

PATIENT
  Age: 50 Year
  Sex: Male

DRUGS (4)
  1. NEXIUM [Suspect]
     Route: 048
  2. SEROQUEL [Concomitant]
  3. PULMICORT [Concomitant]
  4. CRESTOR [Suspect]
     Route: 048

REACTIONS (5)
  - DRUG DOSE OMISSION [None]
  - GASTRIC DISORDER [None]
  - DYSPEPSIA [None]
  - BLOOD CHOLESTEROL ABNORMAL [None]
  - DISCOMFORT [None]
